FAERS Safety Report 8844445 (Version 7)
Quarter: 2014Q3

REPORT INFORMATION
  Report Type: Spontaneous
  Country: US (occurrence: US)
  Receive Date: 20121017
  Receipt Date: 20140923
  Transmission Date: 20150326
  Serious: Yes (Life-Threatening, Other)
  Sender: FDA-Public Use
  Company Number: PHEH2012US020015

PATIENT
  Sex: Female

DRUGS (16)
  1. SIMVASTATIN. [Concomitant]
     Active Substance: SIMVASTATIN
     Dosage: 40 MG, UNK
  2. LISINOPRIL. [Concomitant]
     Active Substance: LISINOPRIL
     Dosage: 20 MG, UNK
  3. EXELON PATCH [Suspect]
     Active Substance: RIVASTIGMINE
     Dosage: 9.5 MG, ONCE DAILY
     Route: 062
     Dates: start: 201105
  4. EXELON [Suspect]
     Active Substance: RIVASTIGMINE TARTRATE
     Dosage: UNK UKN, UNK
     Route: 048
  5. ZAFIRLUKAST. [Concomitant]
     Active Substance: ZAFIRLUKAST
     Dosage: UNK UKN, UNK
  6. ALBUTEROL SULFATE. [Concomitant]
     Active Substance: ALBUTEROL SULFATE
     Dosage: UNK UKN, UNK
  7. ZINC [Concomitant]
     Active Substance: ZINC\ZINC CHLORIDE
     Dosage: UNK UKN, UNK
  8. EXELON PATCH [Suspect]
     Active Substance: RIVASTIGMINE
     Dosage: 13.3 MG, QD
     Route: 062
     Dates: start: 201112
  9. TIZANIDINE [Concomitant]
     Active Substance: TIZANIDINE
     Dosage: UNK UKN, UNK
  10. VITAMIIN C [Concomitant]
     Active Substance: ASCORBIC ACID
     Dosage: UNK UKN, UNK
  11. D3 [Concomitant]
     Active Substance: 25-HYDROXYCHOLECALCIFEROL, 5-TRANS-
     Dosage: 2000 IU, UNK
  12. OMBERZOL [Concomitant]
     Dosage: 20 MG, UNK
  13. EXELON PATCH [Suspect]
     Active Substance: RIVASTIGMINE
     Dosage: 4.6 MG/24 HOURS
     Route: 062
     Dates: start: 2009
  14. LEVOTHYROXINE [Concomitant]
     Active Substance: LEVOTHYROXINE
     Dosage: 125 UG, UNK
  15. ASPIRIN. [Concomitant]
     Active Substance: ASPIRIN
     Dosage: 81 MG, UNK
  16. PRENATAL VITAMINS [Concomitant]
     Active Substance: VITAMINS
     Dosage: UNK UKN, UNK

REACTIONS (19)
  - Abnormal behaviour [Unknown]
  - Myocardial infarction [Unknown]
  - Blood pressure abnormal [Unknown]
  - Condition aggravated [Unknown]
  - Feeling abnormal [Unknown]
  - Asthma [Unknown]
  - Inappropriate schedule of drug administration [Unknown]
  - Wrong technique in drug usage process [Unknown]
  - Confusional state [Unknown]
  - Apparent death [Unknown]
  - Nervous system disorder [Unknown]
  - Dizziness [Unknown]
  - Diarrhoea [Unknown]
  - Asthenia [Unknown]
  - Osteoarthritis [Unknown]
  - Vomiting [Unknown]
  - Blood pressure systolic increased [Unknown]
  - Fibromyalgia [Unknown]
  - Malaise [Unknown]
